FAERS Safety Report 7485386-6 (Version None)
Quarter: 2011Q2

REPORT INFORMATION
  Report Type: 
  Country: None (occurrence: None)
  Receive Date: 20110517
  Receipt Date: 20101221
  Transmission Date: 20111010
  Serious: Yes (Other)
  Sender: FDA-Public Use
  Company Number: US-BAYER-2010-008973

PATIENT
  Age: 41 Year
  Sex: Female

DRUGS (2)
  1. YAZ [Suspect]
     Indication: PRODUCT USED FOR UNKNOWN INDICATION
     Dosage: UNK
     Dates: start: 20020701, end: 20090901
  2. YASMIN [Suspect]
     Indication: PRODUCT USED FOR UNKNOWN INDICATION
     Dosage: UNK
     Dates: start: 20020701, end: 20090901

REACTIONS (9)
  - CEREBRAL HAEMORRHAGE [None]
  - CEREBROVASCULAR ACCIDENT [None]
  - NERVOUS SYSTEM DISORDER [None]
  - COGNITIVE DISORDER [None]
  - PAIN [None]
  - EMOTIONAL DISTRESS [None]
  - GRAND MAL CONVULSION [None]
  - SPEECH DISORDER [None]
  - TRANSVERSE SINUS THROMBOSIS [None]
